FAERS Safety Report 4582419-1 (Version None)
Quarter: 2005Q1

REPORT INFORMATION
  Report Type: 
  Country: None (occurrence: None)
  Receive Date: 20050119
  Receipt Date: 20040709
  Transmission Date: 20050727
  Serious: Yes (Other)
  Sender: FDA-Public Use
  Company Number: US-JNJFOC-20040406373

PATIENT
  Age: 50 Year
  Sex: Female

DRUGS (1)
  1. DOXIL [Suspect]
     Indication: OVARIAN CANCER
     Dosage: INTRAVENOUS
     Route: 042

REACTIONS (2)
  - OVARIAN CANCER [None]
  - PLEURAL EFFUSION [None]
